FAERS Safety Report 17874891 (Version 1)
Quarter: 2020Q2

REPORT INFORMATION
  Report Type: Spontaneous
  Country: US (occurrence: US)
  Receive Date: 20200609
  Receipt Date: 20200609
  Transmission Date: 20200714
  Serious: No
  Sender: FDA-Public Use
  Company Number: US-KYOWAKIRIN-2020BKK009432

PATIENT

DRUGS (3)
  1. CRYSVITA [Suspect]
     Active Substance: BUROSUMAB-TWZA
     Indication: SEBACEOUS NAEVUS
     Dosage: 0.1 MG/KG, 1X/2 WEEKS
     Route: 065
  2. CRYSVITA [Suspect]
     Active Substance: BUROSUMAB-TWZA
     Dosage: 20 MG (0.8 MG/KG) 1X/2 WEEKS
     Route: 065
  3. CRYSVITA [Suspect]
     Active Substance: BUROSUMAB-TWZA
     Dosage: 6 MG (0.3 MG/KG) 1X/2 WEEKS
     Route: 065

REACTIONS (1)
  - Drug effective for unapproved indication [Unknown]
